FAERS Safety Report 23785383 (Version 1)
Quarter: 2024Q2

REPORT INFORMATION
  Report Type: Spontaneous
  Country: KW (occurrence: KW)
  Receive Date: 20240425
  Receipt Date: 20240425
  Transmission Date: 20240716
  Serious: Yes (Disabling)
  Sender: FDA-Public Use
  Company Number: KW-BoehringerIngelheim-2024-BI-024184

PATIENT
  Age: 59 Year
  Sex: Male

DRUGS (2)
  1. JARDIANCE [Suspect]
     Active Substance: EMPAGLIFLOZIN
     Indication: Product used for unknown indication
  2. valsartan Tabuven [Concomitant]
     Indication: Product used for unknown indication

REACTIONS (6)
  - Cough [Recovered/Resolved]
  - Dry mouth [Recovered/Resolved]
  - Dysphonia [Recovered/Resolved]
  - Bladder pain [Recovered/Resolved]
  - Oropharyngeal pain [Recovered/Resolved]
  - Sleep disorder [Recovered/Resolved]
